FAERS Safety Report 22061538 (Version 2)
Quarter: 2023Q1

REPORT INFORMATION
  Report Type: Spontaneous
  Country: DE (occurrence: None)
  Receive Date: 20230304
  Receipt Date: 20230320
  Transmission Date: 20230417
  Serious: Yes (Other)
  Sender: FDA-Public Use
  Company Number: DE-ROCHE-3299431

PATIENT
  Age: 57 Year
  Sex: Male

DRUGS (18)
  1. POLATUZUMAB VEDOTIN [Suspect]
     Active Substance: POLATUZUMAB VEDOTIN
     Indication: Diffuse large B-cell lymphoma
     Dosage: FOURTH LINE WITH RITUXIMAB AND BENDAMUSTINE
     Route: 065
     Dates: start: 20221103, end: 20230122
  2. RITUXIMAB [Suspect]
     Active Substance: RITUXIMAB
     Indication: Diffuse large B-cell lymphoma
     Route: 065
     Dates: start: 20210226, end: 20211015
  3. RITUXIMAB [Suspect]
     Active Substance: RITUXIMAB
     Route: 065
     Dates: start: 20211117, end: 20211230
  4. RITUXIMAB [Suspect]
     Active Substance: RITUXIMAB
     Route: 065
     Dates: start: 20221103, end: 20230122
  5. DOXORUBICIN [Suspect]
     Active Substance: DOXORUBICIN
     Indication: Diffuse large B-cell lymphoma
     Dosage: FIRST LINE WITH RITXUXIMAB 4 TIMES?SECOND LINE WITH DHAOX 17/NOV/2021 TO 30/DEC/2021?FOURTH LINE WIT
     Route: 065
     Dates: start: 20210226, end: 20211015
  6. CYCLOPHOSPHAMIDE [Suspect]
     Active Substance: CYCLOPHOSPHAMIDE
     Indication: Diffuse large B-cell lymphoma
     Dosage: FIRST LINE WITH RITXUXIMAB 4 TIMES?SECOND LINE WITH DHAOX 17/NOV/2021 TO 30/DEC/2021?FOURTH LINE WIT
     Route: 065
     Dates: start: 20210226, end: 20211015
  7. VINDESINE [Suspect]
     Active Substance: VINDESINE
     Indication: Diffuse large B-cell lymphoma
     Dosage: SECOND LINE WITH RITUXIMAB FIRST LINE WITH RITXUXIMAB, WITH RITUXIMAB 4 TIMES
     Route: 065
     Dates: start: 20210226, end: 20211015
  8. BLEOMYCIN [Suspect]
     Active Substance: BLEOMYCIN SULFATE
     Indication: Diffuse large B-cell lymphoma
     Dosage: FOURTH LINE WITH RITUXIMAB AND POLATUZUMABSECOND LINE WITH RITUXIMABFIRST LINE WITH RITXUXIMAB
     Route: 065
     Dates: start: 20210226, end: 20211015
  9. PREDNISONE [Suspect]
     Active Substance: PREDNISONE
     Indication: Diffuse large B-cell lymphoma
     Dosage: FOURTH LINE WITH RITUXIMAB AND POLATUZUMAB 03/NOV/2022 TO 22/JAN/2023?SECOND LINE WITH RITUXIMAB, SE
     Route: 065
     Dates: start: 20210226, end: 20211015
  10. DEXAMETHASONE [Suspect]
     Active Substance: DEXAMETHASONE
     Indication: Diffuse large B-cell lymphoma
     Dosage: FOURTH LINE WITH RITUXIMAB AND POLATUZUMAB?SECOND LINE WITH RITUXIMAB
     Route: 065
     Dates: start: 20211117, end: 20211230
  11. CYTARABINE [Suspect]
     Active Substance: CYTARABINE
     Indication: Diffuse large B-cell lymphoma
     Dosage: FOURTH LINE WITH RITUXIMAB AND POLATUZUMAB?SECOND LINE WITH RITUXIMAB
     Route: 065
     Dates: start: 20211117, end: 20211230
  12. OXALIPLATIN [Suspect]
     Active Substance: OXALIPLATIN
     Indication: Diffuse large B-cell lymphoma
     Dosage: FOURTH LINE WITH RITUXIMAB AND POLATUZUMAB 03/NOV/2022 TO 22/JAN/2023?SECOND LINE WITH DHAOX 17/NOV/
     Route: 065
     Dates: start: 20211117, end: 20211230
  13. BENDAMUSTINE [Suspect]
     Active Substance: BENDAMUSTINE
     Indication: Diffuse large B-cell lymphoma
     Dosage: FOURTH LINE WITH RITUXIMAB AND POLATUZUMAB?SECOND LINE WITH RITUXIMAB
     Route: 065
     Dates: start: 20221103, end: 20230122
  14. METHOTREXATE [Suspect]
     Active Substance: METHOTREXATE
     Indication: Diffuse large B-cell lymphoma
     Dosage: WITH RITUXIMAB 2 TIMES?SECOND LINE WITH DHAOX 17/NOV/2021 TO 30/DEC/2021?FOURTH LINE WITH POLATUZUMA
     Route: 065
     Dates: start: 20210226, end: 20211015
  15. IFOSFAMIDE [Suspect]
     Active Substance: IFOSFAMIDE
     Indication: Diffuse large B-cell lymphoma
     Dosage: WITH RITUXIMAB ETOPOSIDE AND 4 TIMES?SECOND LINE WITH DHAOX 17/NOV/2021 TO 30/DEC/2021?FOURTH LINE W
     Route: 065
     Dates: start: 20210226, end: 20211015
  16. ETOPOSIDE [Suspect]
     Active Substance: ETOPOSIDE
     Indication: Diffuse large B-cell lymphoma
     Dosage: WITH RITUXIMAB IFOSFAMIDE AND 4 TIMES?SECOND LINE WITH DHAOX 17/NOV/2021 TO 30/DEC/2021?FOURTH LINE
     Route: 065
     Dates: start: 20210226, end: 20211015
  17. ADRIAMYCIN [Suspect]
     Active Substance: DOXORUBICIN HYDROCHLORIDE
     Indication: Diffuse large B-cell lymphoma
     Route: 065
     Dates: start: 20210226, end: 20211015
  18. VINCRISTINE [Suspect]
     Active Substance: VINCRISTINE
     Indication: Diffuse large B-cell lymphoma
     Route: 065
     Dates: start: 20210226, end: 20211015

REACTIONS (1)
  - Lymphoma [Not Recovered/Not Resolved]
